FAERS Safety Report 8925372 (Version 1)
Quarter: 2012Q4

REPORT INFORMATION
  Report Type: 
  Country: FR (occurrence: FR)
  Receive Date: 20121126
  Receipt Date: 20121126
  Transmission Date: 20130627
  Serious: Yes (Hospitalization, Other)
  Sender: FDA-Public Use
  Company Number: FR-VERTEX PHARMACEUTICAL INC.-AE-2011-000141

PATIENT
  Age: 53 Year
  Sex: Male
  Weight: 100 kg

DRUGS (13)
  1. VX-950 (TELAPREVIR) [Suspect]
     Indication: HEPATITIS C
     Dosage: 750 mg,
     Route: 048
     Dates: start: 20110320, end: 20110616
  2. PEGASYS [Concomitant]
     Indication: HEPATITIS C
     Dosage: 180 ?g, qw
     Route: 058
     Dates: start: 20110520
  3. COPEGUS [Concomitant]
     Indication: HEPATITIS C
     Dosage: 1200 mg, qd
     Route: 048
     Dates: start: 20110320, end: 20110426
  4. COPEGUS [Concomitant]
     Dosage: 1000 mg, qd
     Route: 048
     Dates: start: 20110427, end: 20110508
  5. COPEGUS [Concomitant]
     Dosage: 800 mg, qd
     Route: 048
     Dates: start: 20110509, end: 20110628
  6. COPEGUS [Concomitant]
     Dosage: 200 mg, tid
     Dates: start: 20110629, end: 20110706
  7. TRIATEC [Concomitant]
     Indication: HYPERTENSION
     Dates: end: 20110408
  8. COKENZEN [Concomitant]
     Indication: HYPERTENSION
     Dosage: UNK
     Dates: start: 20110201
  9. AVLOCARDYL [Concomitant]
     Indication: OESOPHAGEAL VARICES HAEMORRHAGE
     Dosage: 160 mg, qd
     Dates: start: 20110201
  10. LANTUS [Concomitant]
     Indication: DIABETES MELLITUS
  11. METFORMINE [Concomitant]
     Indication: DIABETES MELLITUS
     Dosage: 700 mg, bid
     Dates: start: 20110201
  12. LEVOTHYROX [Concomitant]
     Indication: HYPOTHYROIDISM
     Dosage: 50 ?g, qd
     Dates: start: 20110201
  13. INSULIN [Concomitant]
     Indication: DIABETES MELLITUS
     Dosage: 32 IU, qw
     Dates: start: 20110201

REACTIONS (4)
  - Blood urea increased [Not Recovered/Not Resolved]
  - Neutropenia [Unknown]
  - Anaemia [Recovered/Resolved]
  - Blood creatinine increased [Not Recovered/Not Resolved]
